FAERS Safety Report 9188815 (Version 3)
Quarter: 2013Q2

REPORT INFORMATION
  Report Type: Report from Study
  Country: DE (occurrence: DE)
  Receive Date: 20130326
  Receipt Date: 20130410
  Transmission Date: 20140414
  Serious: Yes (Hospitalization)
  Sender: FDA-Public Use
  Company Number: DE-BAXTER-2013BAX010945

PATIENT
  Age: 72 Year
  Sex: Female
  Weight: 51 kg

DRUGS (20)
  1. ENDOXAN 1G [Suspect]
     Indication: B-CELL LYMPHOMA
     Route: 042
     Dates: start: 20120727
  2. ENDOXAN 1G [Suspect]
     Route: 042
     Dates: start: 20121109
  3. DOXORUBICIN [Suspect]
     Indication: B-CELL LYMPHOMA
     Route: 042
     Dates: start: 20120727
  4. DOXORUBICIN [Suspect]
     Route: 042
     Dates: start: 20121109
  5. PREDNISONE [Suspect]
     Indication: B-CELL LYMPHOMA
     Route: 065
     Dates: start: 20120727
  6. PREDNISONE [Suspect]
     Route: 065
     Dates: start: 20121113
  7. VINCRISTINE [Suspect]
     Indication: B-CELL LYMPHOMA
     Route: 040
     Dates: start: 20120727
  8. VINCRISTINE [Suspect]
     Route: 040
     Dates: start: 20120928
  9. PANTOZOL [Concomitant]
     Indication: PRODUCT USED FOR UNKNOWN INDICATION
     Route: 065
     Dates: start: 20120723
  10. NOVALGIN [Concomitant]
     Indication: PRODUCT USED FOR UNKNOWN INDICATION
     Route: 065
     Dates: start: 20120723
  11. VALORON [Concomitant]
     Indication: PRODUCT USED FOR UNKNOWN INDICATION
     Route: 065
     Dates: start: 20120723
  12. LYRICA [Concomitant]
     Indication: PRODUCT USED FOR UNKNOWN INDICATION
     Route: 065
     Dates: start: 20120723
  13. LAXOBERAL [Concomitant]
     Indication: CONSTIPATION
     Route: 065
     Dates: start: 20120723
  14. CLEXANE [Concomitant]
     Indication: ATRIAL FLUTTER
     Route: 065
     Dates: start: 20120802
  15. GLANDOMED [Concomitant]
     Indication: PRODUCT USED FOR UNKNOWN INDICATION
     Route: 065
     Dates: start: 20120802
  16. OXAZEPAM [Concomitant]
     Indication: PRODUCT USED FOR UNKNOWN INDICATION
     Route: 065
     Dates: start: 20120802
  17. SAB SIMPLEX [Concomitant]
     Indication: PRODUCT USED FOR UNKNOWN INDICATION
     Route: 065
     Dates: start: 20120809
  18. XARELTO [Concomitant]
     Indication: ATRIAL FLUTTER
     Route: 065
     Dates: start: 20120920
  19. XARELTO [Concomitant]
     Route: 065
     Dates: start: 20130214, end: 20130301
  20. CONCOR [Concomitant]
     Indication: ATRIAL FLUTTER
     Route: 065
     Dates: start: 20120801

REACTIONS (1)
  - Viral infection [Recovered/Resolved]
